FAERS Safety Report 24404651 (Version 1)
Quarter: 2024Q4

REPORT INFORMATION
  Report Type: Spontaneous
  Country: HU (occurrence: HU)
  Receive Date: 20241007
  Receipt Date: 20241007
  Transmission Date: 20250115
  Serious: No
  Sender: ROCHE
  Company Number: HU-ROCHE-3520188

PATIENT
  Age: 50 Year
  Sex: Male

DRUGS (2)
  1. OBINUTUZUMAB [Suspect]
     Active Substance: OBINUTUZUMAB
     Indication: Chronic lymphocytic leukaemia
     Dosage: ADMINISTRATION OF FIRST 100 MG INFUSION
     Route: 042
  2. OBINUTUZUMAB [Suspect]
     Active Substance: OBINUTUZUMAB
     Route: 042

REACTIONS (4)
  - Pyrexia [Unknown]
  - Hypoxia [Unknown]
  - Hypotension [Unknown]
  - Procalcitonin increased [Unknown]
